FAERS Safety Report 6752609-8 (Version None)
Quarter: 2010Q2

REPORT INFORMATION
  Report Type: 
  Country: None (occurrence: None)
  Receive Date: 20100601
  Receipt Date: 20100601
  Transmission Date: 20101027
  Serious: Yes (Other)
  Sender: FDA-Public Use
  Company Number: None

PATIENT
  Age: 19 Year
  Sex: Female
  Weight: 65.7716 kg

DRUGS (2)
  1. CYMBALTA [Suspect]
     Indication: DEPRESSION
     Dosage: 20 MG 1X/DAY PO
     Route: 048
     Dates: start: 20100313, end: 20100520
  2. CYMBALTA [Suspect]
     Indication: FIBROMYALGIA
     Dosage: 20 MG 1X/DAY PO
     Route: 048
     Dates: start: 20100313, end: 20100520

REACTIONS (3)
  - BINGE EATING [None]
  - DEPRESSION [None]
  - SUICIDAL IDEATION [None]
